FAERS Safety Report 20099656 (Version 1)
Quarter: 2021Q4

REPORT INFORMATION
  Report Type: Spontaneous
  Country: CA (occurrence: CA)
  Receive Date: 20211123
  Receipt Date: 20211123
  Transmission Date: 20220303
  Serious: No
  Sender: FDA-Public Use
  Company Number: CA-ALKEM LABORATORIES LIMITED-CA-ALKEM-2021-06578

PATIENT
  Age: 41 Year
  Sex: Male

DRUGS (2)
  1. AMPHETAMINE SULFATE [Suspect]
     Active Substance: AMPHETAMINE SULFATE
     Indication: Drug use disorder
     Dosage: UNK
     Route: 065
  2. BUPRENORPHINE AND NALOXONE [Suspect]
     Active Substance: BUPRENORPHINE HYDROCHLORIDE\NALOXONE HYDROCHLORIDE
     Indication: Drug use disorder
     Dosage: UNK (2 MG/0.5 MG)
     Route: 065

REACTIONS (10)
  - Drug withdrawal syndrome [Unknown]
  - Hyperhidrosis [Unknown]
  - Retching [Unknown]
  - Dyskinesia [Unknown]
  - Heart rate increased [Unknown]
  - Amphetamines positive [Unknown]
  - Withdrawal syndrome [Unknown]
  - Akathisia [Unknown]
  - Vomiting [Unknown]
  - Myalgia [Unknown]
